FAERS Safety Report 18077169 (Version 3)
Quarter: 2020Q4

REPORT INFORMATION
  Report Type: Report from Study
  Country: GB (occurrence: GB)
  Receive Date: 20200727
  Receipt Date: 20201101
  Transmission Date: 20210113
  Serious: Yes (Hospitalization)
  Sender: FDA-Public Use
  Company Number: GB-SAMSUNG BIOEPIS-SB-2020-23481

PATIENT
  Sex: Male

DRUGS (1)
  1. IMRALDI [Suspect]
     Active Substance: ADALIMUMAB
     Indication: CROHN^S DISEASE
     Route: 058

REACTIONS (3)
  - Crohn^s disease [Unknown]
  - COVID-19 [Unknown]
  - Anaemia [Unknown]
